FAERS Safety Report 9089525 (Version 1)
Quarter: 2013Q1

REPORT INFORMATION
  Report Type: Report from Study
  Country: US (occurrence: US)
  Receive Date: 20130201
  Receipt Date: 20130201
  Transmission Date: 20140127
  Serious: No
  Sender: FDA-Public Use
  Company Number: US-ABBOTT-12P-163-1026801-00

PATIENT
  Age: 58 Year
  Sex: Female

DRUGS (9)
  1. HUMIRA [Suspect]
     Indication: RHEUMATOID ARTHRITIS
     Route: 058
     Dates: start: 2003
  2. METHOTREXATE [Concomitant]
     Indication: PRODUCT USED FOR UNKNOWN INDICATION
     Dosage: 12.5MG/0.5ML WEEKLY
  3. COZAAR [Concomitant]
     Indication: HYPERTENSION
  4. TRAMADOL [Concomitant]
     Indication: ARTHRALGIA
  5. NAPROXEN [Concomitant]
     Indication: PAIN
  6. FOLIC ACID [Concomitant]
     Indication: PRODUCT USED FOR UNKNOWN INDICATION
  7. OMEPRAZOLE [Concomitant]
     Indication: GASTROOESOPHAGEAL REFLUX DISEASE
  8. MEDROXYPROGESTERONE [Concomitant]
     Indication: HORMONE REPLACEMENT THERAPY
  9. CHLORTHALIDONE [Concomitant]
     Indication: HYPERTENSION

REACTIONS (6)
  - Incorrect storage of drug [Recovered/Resolved]
  - Injection site pain [Recovered/Resolved]
  - Blood cholesterol increased [Unknown]
  - Chest pain [Unknown]
  - Paraesthesia [Unknown]
  - Anaemia [Recovered/Resolved]
